FAERS Safety Report 5910005-7 (Version None)
Quarter: 2008Q4

REPORT INFORMATION
  Report Type: 
  Country: None (occurrence: None)
  Receive Date: 20081007
  Receipt Date: 20081006
  Transmission Date: 20090506
  Serious: Yes (Other)
  Sender: FDA-Public Use
  Company Number: US-BAYER-200821735NA

PATIENT
  Age: 42 Year
  Sex: Female

DRUGS (4)
  1. AVELOX [Suspect]
     Indication: DRUG USE FOR UNKNOWN INDICATION
     Route: 048
     Dates: start: 20051110
  2. CARBAMAZEPINE [Concomitant]
  3. CARISOPRODOL [Concomitant]
  4. ATENOLOL [Concomitant]

REACTIONS (14)
  - ANAPHYLACTIC REACTION [None]
  - AUTOIMMUNE DISORDER [None]
  - BINOCULAR EYE MOVEMENT DISORDER [None]
  - CARDIOVASCULAR DISORDER [None]
  - CONFUSIONAL STATE [None]
  - DYSPNOEA [None]
  - FACIAL PAIN [None]
  - FEELING COLD [None]
  - HYPOAESTHESIA [None]
  - PARAESTHESIA [None]
  - PILOERECTION [None]
  - RHINORRHOEA [None]
  - SNEEZING [None]
  - VASCULITIS [None]
